FAERS Safety Report 14887340 (Version 3)
Quarter: 2018Q3

REPORT INFORMATION
  Report Type: Spontaneous
  Country: RU (occurrence: RU)
  Receive Date: 20180513
  Receipt Date: 20180904
  Transmission Date: 20181010
  Serious: Yes (Hospitalization, Disabling, Other)
  Sender: FDA-Public Use
  Company Number: RU-NOVOPROD-598961

PATIENT
  Age: 56 Year
  Sex: Male

DRUGS (6)
  1. MERTENIL [Concomitant]
     Dosage: 10 MG
  2. SIOFOR [Concomitant]
     Active Substance: METFORMIN HYDROCHLORIDE
     Indication: TYPE 2 DIABETES MELLITUS
     Dosage: 5 TAB, QD
     Route: 048
  3. NOLIPREL BI FORTE A [Concomitant]
     Dosage: 10 + 2.5 MG TABLETS ? 1 TAB IN THE MORNING
  4. VICTOZA [Suspect]
     Active Substance: LIRAGLUTIDE
     Indication: TYPE 2 DIABETES MELLITUS
     Dosage: 0.6 MG, QD
     Route: 058
     Dates: start: 201404
  5. VICTOZA [Suspect]
     Active Substance: LIRAGLUTIDE
     Dosage: 1.2 MG, QD
     Route: 058
     Dates: start: 2014, end: 2014
  6. ISOPTIN                            /00014301/ [Concomitant]
     Dosage: 1 TAB, QD

REACTIONS (1)
  - Neuroendocrine carcinoma of the skin [Not Recovered/Not Resolved]

NARRATIVE: CASE EVENT DATE: 2014
